FAERS Safety Report 21837695 (Version 4)
Quarter: 2023Q1

REPORT INFORMATION
  Report Type: Spontaneous
  Country: GB (occurrence: GB)
  Receive Date: 20230109
  Receipt Date: 20230124
  Transmission Date: 20230418
  Serious: Yes (Death, Hospitalization, Other)
  Sender: FDA-Public Use
  Company Number: GB-MYLANLABS-2023M1001592

PATIENT
  Age: 53 Year
  Sex: Female

DRUGS (2)
  1. CLOZARIL [Suspect]
     Active Substance: CLOZAPINE
     Indication: Schizophrenia
     Dosage: 700 MILLIGRAM, QD (300 MG MANE, 400 MG NOCTE)
     Route: 048
     Dates: start: 20010701
  2. SERTRALINE [Concomitant]
     Active Substance: SERTRALINE HYDROCHLORIDE
     Indication: Depression
     Dosage: 125 MILLIGRAM, QD
     Route: 048

REACTIONS (5)
  - Aneurysm [Fatal]
  - Myocardial infarction [Fatal]
  - Brain injury [Unknown]
  - Loss of consciousness [Unknown]
  - Fall [Unknown]
